FAERS Safety Report 15152758 (Version 4)
Quarter: 2019Q1

REPORT INFORMATION
  Report Type: Spontaneous
  Country: JP (occurrence: JP)
  Receive Date: 20180717
  Receipt Date: 20190205
  Transmission Date: 20190417
  Serious: Yes (Life-Threatening, Hospitalization)
  Sender: FDA-Public Use
  Company Number: JP-SUN PHARMACEUTICAL INDUSTRIES LTD-2018R3-178309

PATIENT
  Age: 37 Year
  Sex: Female

DRUGS (1)
  1. APRESOLINE HYDROCHLORIDE [Suspect]
     Active Substance: HYDRALAZINE HYDROCHLORIDE
     Indication: GESTATIONAL HYPERTENSION
     Dosage: UNK
     Route: 048

REACTIONS (5)
  - Coronary artery dissection [Unknown]
  - Prolonged labour [Unknown]
  - Chest pain [Unknown]
  - Cardio-respiratory arrest [Recovered/Resolved]
  - Exposure during pregnancy [Unknown]
